FAERS Safety Report 4307251-5 (Version None)
Quarter: 2004Q1

REPORT INFORMATION
  Report Type: 
  Country: None (occurrence: None)
  Receive Date: 20040226
  Receipt Date: 20040212
  Transmission Date: 20041129
  Serious: Yes (Death)
  Sender: FDA-Public Use
  Company Number: USA-2003-0009510

PATIENT
  Age: 49 Year
  Sex: Male
  Weight: 79.4 kg

DRUGS (11)
  1. OXYCONTIN [Suspect]
     Indication: PAIN
     Dosage: 80 MG, Q12H,
     Dates: start: 20020101
  2. HYDROCODONE BITARTRATE [Suspect]
  3. VALIUM [Suspect]
     Indication: ANXIETY
     Dosage: 10 MG, PRN
  4. DILANTIN [Suspect]
     Indication: CONVULSION
     Dosage: 100 MG, TID
  5. PHENOBARBITAL TAB [Suspect]
     Indication: CONVULSION
     Dosage: 10 MG, BID
  6. LIDODERM PATCH  (LIDOCAINE) [Concomitant]
  7. CELEBREX [Concomitant]
  8. CLONIDINE [Concomitant]
  9. NEXIUM (ESOMEOPRAZOLE) [Concomitant]
  10. ASPIRIN [Concomitant]
  11. DIOVAN (VALASARTAN) [Concomitant]

REACTIONS (17)
  - ACCIDENTAL OVERDOSE [None]
  - BLOOD CULTURE POSITIVE [None]
  - CARDIAC VALVE DISEASE [None]
  - CARDIOMEGALY [None]
  - CORONARY ARTERY ATHEROSCLEROSIS [None]
  - CULTURE URINE POSITIVE [None]
  - DRUG INTERACTION POTENTIATION [None]
  - GINGIVAL HYPERPLASIA [None]
  - GRANULOMA [None]
  - LUNG DISORDER [None]
  - LYMPHADENOPATHY [None]
  - MULTIPLE DRUG OVERDOSE [None]
  - MYOCARDIAL INFARCTION [None]
  - PNEUMONIA [None]
  - RENAL DISORDER [None]
  - SKIN TURGOR DECREASED [None]
  - VENTRICULAR HYPERTROPHY [None]
